FAERS Safety Report 10917531 (Version 1)
Quarter: 2015Q1

REPORT INFORMATION
  Report Type: Report from Study
  Country: US (occurrence: US)
  Receive Date: 20150316
  Receipt Date: 20150316
  Transmission Date: 20150721
  Serious: Yes (Disabling)
  Sender: FDA-Public Use
  Company Number: US-SA-2014SA140398

PATIENT
  Age: 54 Year
  Sex: Male

DRUGS (1)
  1. AUBAGIO [Suspect]
     Active Substance: TERIFLUNOMIDE
     Indication: MULTIPLE SCLEROSIS
     Route: 048
     Dates: start: 20130702

REACTIONS (8)
  - Grip strength decreased [Unknown]
  - Activities of daily living impaired [Unknown]
  - Muscle twitching [Unknown]
  - Motor dysfunction [Unknown]
  - Unevaluable event [Unknown]
  - Fine motor delay [Unknown]
  - Gait disturbance [Unknown]
  - Dysgraphia [Unknown]
